FAERS Safety Report 6577656-0 (Version None)
Quarter: 2010Q1

REPORT INFORMATION
  Report Type: 
  Country: None (occurrence: None)
  Receive Date: 20100211
  Receipt Date: 20100203
  Transmission Date: 20100710
  Serious: Yes (Other)
  Sender: FDA-Public Use
  Company Number: PHHY2009DE32872

PATIENT
  Sex: Female
  Weight: 70 kg

DRUGS (4)
  1. RASILEZ HCT [Suspect]
     Indication: HYPERTENSION
     Dosage: 300/12.5 MG PER DAY
     Dates: start: 20090720, end: 20090815
  2. AMOXICILLIN [Suspect]
     Indication: TONSILLITIS
     Dosage: 3 G PER DAY
     Dates: start: 20090730, end: 20090805
  3. SIMVASTATIN [Concomitant]
     Indication: HYPERCHOLESTEROLAEMIA
     Dosage: 20 MG PER DAY
     Dates: start: 20060101
  4. SERUM LIPID REDUCING AGENTS [Concomitant]
     Indication: HYPERLIPIDAEMIA
     Dosage: UNK

REACTIONS (7)
  - ASPARTATE AMINOTRANSFERASE INCREASED [None]
  - BLOOD CREATININE INCREASED [None]
  - FATIGUE [None]
  - GAMMA-GLUTAMYLTRANSFERASE INCREASED [None]
  - IRON DEFICIENCY ANAEMIA [None]
  - PYREXIA [None]
  - TONSILLITIS [None]
